FAERS Safety Report 13033582 (Version 9)
Quarter: 2020Q4

REPORT INFORMATION
  Report Type: Report from Study
  Country: CA (occurrence: CA)
  Receive Date: 20161216
  Receipt Date: 20201118
  Transmission Date: 20210113
  Serious: Yes (Hospitalization, Other)
  Sender: FDA-Public Use
  Company Number: CA-BIOGEN-2016BI00330189

PATIENT
  Age: 47 Year
  Sex: Female

DRUGS (8)
  1. FAMPYRA [Suspect]
     Active Substance: DALFAMPRIDINE
     Route: 050
     Dates: start: 20181228
  2. FAMPYRA [Suspect]
     Active Substance: DALFAMPRIDINE
     Route: 050
     Dates: start: 201612
  3. FAMPYRA [Suspect]
     Active Substance: DALFAMPRIDINE
     Indication: GAIT DISTURBANCE
     Route: 050
     Dates: start: 20121221, end: 20161125
  4. FAMPYRA [Suspect]
     Active Substance: DALFAMPRIDINE
     Route: 050
     Dates: end: 20181206
  5. FAMPYRA [Suspect]
     Active Substance: DALFAMPRIDINE
     Route: 050
  6. FAMPYRA [Suspect]
     Active Substance: DALFAMPRIDINE
     Route: 050
  7. FAMPYRA [Suspect]
     Active Substance: DALFAMPRIDINE
     Route: 050
     Dates: start: 201407
  8. FAMPYRA [Suspect]
     Active Substance: DALFAMPRIDINE
     Route: 050
     Dates: start: 20121221, end: 20201110

REACTIONS (10)
  - Enteritis infectious [Recovered/Resolved]
  - Urinary tract infection [Unknown]
  - Muscular weakness [Not Recovered/Not Resolved]
  - Dysstasia [Unknown]
  - Gait inability [Unknown]
  - Multiple sclerosis relapse [Unknown]
  - Mobility decreased [Recovered/Resolved]
  - Discomfort [Unknown]
  - Multiple sclerosis [Not Recovered/Not Resolved]
  - Intestinal obstruction [Recovered/Resolved]

NARRATIVE: CASE EVENT DATE: 201611
